FAERS Safety Report 6440167-7 (Version None)
Quarter: 2009Q4

REPORT INFORMATION
  Report Type: 
  Country: None (occurrence: None)
  Receive Date: 20091113
  Receipt Date: 20090615
  Transmission Date: 20100525
  Serious: No
  Sender: FDA-Public Use
  Company Number: A0788035A

PATIENT
  Sex: Male

DRUGS (1)
  1. CARVEDILOL [Suspect]

REACTIONS (6)
  - CONDITION AGGRAVATED [None]
  - DISABILITY [None]
  - DIZZINESS [None]
  - DRUG INTOLERANCE [None]
  - FATIGUE [None]
  - MALAISE [None]
